FAERS Safety Report 9547681 (Version 1)
Quarter: 2013Q3

REPORT INFORMATION
  Report Type: Spontaneous
  Country: GB (occurrence: None)
  Receive Date: 20130920
  Receipt Date: 20130920
  Transmission Date: 20140515
  Serious: Yes (Other)
  Sender: FDA-Public Use
  Company Number: AUR-APL-2013-07748

PATIENT
  Age: 50 Year
  Sex: Female
  Weight: 45 kg

DRUGS (1)
  1. OLANZAPINE [Suspect]
     Indication: PRODUCT USED FOR UNKNOWN INDICATION
     Dates: start: 201305, end: 201306

REACTIONS (5)
  - Nausea [None]
  - Dizziness [None]
  - Disorientation [None]
  - Emotional distress [None]
  - Muscle spasms [None]
